FAERS Safety Report 7925831-2 (Version None)
Quarter: 2011Q4

REPORT INFORMATION
  Report Type: 
  Country: None (occurrence: None)
  Receive Date: 20111118
  Receipt Date: 20110413
  Transmission Date: 20120403
  Serious: No
  Sender: FDA-Public Use
  Company Number: US-AMGEN-USASP2011019680

PATIENT
  Age: 53 Year
  Sex: Female
  Weight: 68.027 kg

DRUGS (5)
  1. CALCIUM D                          /00944201/ [Concomitant]
  2. VITAMIN D [Concomitant]
     Dosage: 1000 IU, UNK
  3. FOSAMAX [Concomitant]
     Dosage: 5 MG, UNK
  4. LUNESTA [Concomitant]
     Dosage: 1 MG, UNK
  5. ENBREL [Suspect]
     Indication: PRODUCT USED FOR UNKNOWN INDICATION
     Dosage: 50 MG, QWK
     Route: 058

REACTIONS (4)
  - INJECTION SITE PRURITUS [None]
  - INJECTION SITE SWELLING [None]
  - INJECTION SITE ERYTHEMA [None]
  - INJECTION SITE REACTION [None]
